FAERS Safety Report 7208329-9 (Version None)
Quarter: 2010Q4

REPORT INFORMATION
  Report Type: 
  Country: None (occurrence: None)
  Receive Date: 20101222
  Receipt Date: 20101209
  Transmission Date: 20110411
  Serious: Yes (Other)
  Sender: FDA-Public Use
  Company Number: 2010005399

PATIENT
  Age: 72 Year
  Sex: Female

DRUGS (1)
  1. TARCEVA [Suspect]
     Indication: PANCREATIC CARCINOMA

REACTIONS (5)
  - BILE DUCT OBSTRUCTION [None]
  - BILIARY DILATATION [None]
  - HEPATIC ENZYME INCREASED [None]
  - JAUNDICE [None]
  - METASTASES TO LIVER [None]
